FAERS Safety Report 4350011-X (Version None)
Quarter: 2004Q2

REPORT INFORMATION
  Report Type: 
  Country: None (occurrence: None)
  Receive Date: 20040428
  Receipt Date: 20040428
  Transmission Date: 20050107
  Serious: Yes (Other)
  Sender: FDA-Public Use
  Company Number: None

PATIENT
  Age: 65 Year
  Sex: Male

DRUGS (1)
  1. VORICONAZOLE 200MG [Suspect]
     Indication: FUNGAL INFECTION
     Dosage: 200 Q12H INTRAVENOUS
     Route: 042
     Dates: start: 20040229, end: 20040303

REACTIONS (1)
  - HALLUCINATION, VISUAL [None]
